FAERS Safety Report 15940892 (Version 2)
Quarter: 2019Q1

REPORT INFORMATION
  Report Type: Spontaneous
  Country: US (occurrence: US)
  Receive Date: 20190208
  Receipt Date: 20190213
  Transmission Date: 20190417
  Serious: No
  Sender: FDA-Public Use
  Company Number: US-SA-2019SA034888

PATIENT
  Age: 57 Year
  Sex: Female

DRUGS (1)
  1. TOUJEO [Suspect]
     Active Substance: INSULIN GLARGINE
     Dosage: 80 U, QD
     Route: 065
     Dates: start: 2018

REACTIONS (3)
  - Cough [Unknown]
  - Device operational issue [Unknown]
  - Injury associated with device [Unknown]
